FAERS Safety Report 8572856-2 (Version None)
Quarter: 2012Q3

REPORT INFORMATION
  Report Type: 
  Country: None (occurrence: None)
  Receive Date: 20120806
  Receipt Date: 20120731
  Transmission Date: 20120928
  Serious: No
  Sender: FDA-Public Use
  Company Number: US-BAYER-2012-077727

PATIENT
  Age: 91 Year
  Sex: Male
  Weight: 55 kg

DRUGS (4)
  1. IBUPROFEN [Concomitant]
  2. TRIAMTERENE [Concomitant]
  3. ALEVE (CAPLET) [Suspect]
     Indication: PAIN
     Dosage: 2 DF, QD
     Route: 048
     Dates: start: 20120718, end: 20120725
  4. ASPIRIN [Concomitant]
     Indication: ISCHAEMIC HEART DISEASE PROPHYLAXIS

REACTIONS (1)
  - PAIN [None]
